FAERS Safety Report 20922437 (Version 1)
Quarter: 2022Q2

REPORT INFORMATION
  Report Type: Spontaneous
  Country: FR (occurrence: None)
  Receive Date: 20220607
  Receipt Date: 20220607
  Transmission Date: 20220720
  Serious: Yes (Death, Other)
  Sender: FDA-Public Use
  Company Number: FR-Orion Corporation ORION PHARMA-TREX2022-0104

PATIENT
  Age: 79 Year
  Sex: Female

DRUGS (9)
  1. METHOTREXATE [Suspect]
     Active Substance: METHOTREXATE
     Indication: Rheumatoid arthritis
     Dosage: 4 TABLETS OF 2.5 MG
     Route: 048
     Dates: start: 20220312, end: 20220321
  2. FUROSEMIDE [Concomitant]
     Active Substance: FUROSEMIDE
     Route: 065
  3. DIGOXIN [Concomitant]
     Active Substance: DIGOXIN
     Route: 065
  4. PREDNISOLONE [Concomitant]
     Active Substance: PREDNISOLONE
     Route: 065
  5. SERTRALINE [Concomitant]
     Active Substance: SERTRALINE HYDROCHLORIDE
     Route: 065
  6. BENSERAZIDE HYDROCHLORIDE\LEVODOPA [Concomitant]
     Active Substance: BENSERAZIDE HYDROCHLORIDE\LEVODOPA
     Route: 065
  7. QUETIAPINE [Concomitant]
     Active Substance: QUETIAPINE
     Route: 065
  8. ALPRAZOLAM [Concomitant]
     Active Substance: ALPRAZOLAM
     Route: 065
  9. PRAZEPAM [Concomitant]
     Active Substance: PRAZEPAM
     Route: 065

REACTIONS (15)
  - Inappropriate schedule of product administration [Fatal]
  - Accidental overdose [Fatal]
  - Febrile bone marrow aplasia [Fatal]
  - Nausea [Fatal]
  - Diarrhoea [Fatal]
  - COVID-19 [Unknown]
  - Multiple organ dysfunction syndrome [Fatal]
  - Cardiomegaly [Unknown]
  - Dilatation atrial [Unknown]
  - Renal impairment [Unknown]
  - Anuria [Unknown]
  - Nervous system disorder [Unknown]
  - Hypoxia [Unknown]
  - Pleural effusion [Unknown]
  - Coma [Unknown]

NARRATIVE: CASE EVENT DATE: 20220301
